FAERS Safety Report 5471384-0 (Version None)
Quarter: 2007Q3

REPORT INFORMATION
  Report Type: 
  Country: None (occurrence: None)
  Receive Date: 20070928
  Receipt Date: 20060918
  Transmission Date: 20080115
  Serious: No
  Sender: FDA-Public Use
  Company Number: US-BRISTOL-MYERS SQUIBB COMPANY-13513486

PATIENT
  Age: 66 Year
  Sex: Female
  Weight: 113 kg

DRUGS (2)
  1. DEFINITY [Suspect]
     Indication: STRESS ECHOCARDIOGRAM
     Dosage: 1.3 CC OF
     Route: 042
     Dates: start: 20060918, end: 20060918
  2. SODIUM CHLORIDE [Concomitant]
     Indication: STRESS ECHOCARDIOGRAM
     Route: 042
     Dates: start: 20060918, end: 20060918

REACTIONS (1)
  - BACK PAIN [None]
